FAERS Safety Report 5033294-2 (Version None)
Quarter: 2006Q2

REPORT INFORMATION
  Report Type: 
  Country: None (occurrence: None)
  Receive Date: 20060515
  Receipt Date: 20060412
  Transmission Date: 20061013
  Serious: No
  Sender: FDA-Public Use
  Company Number: S06-USA-01472-01

PATIENT
  Age: 76 Year
  Sex: Female

DRUGS (9)
  1. NAMENDA [Suspect]
     Indication: DEMENTIA ALZHEIMER'S TYPE
     Dosage: 10 MG BID PO
     Route: 048
     Dates: start: 20060405, end: 20060401
  2. NAMENDA [Suspect]
     Indication: DEMENTIA ALZHEIMER'S TYPE
     Dosage: 15 MG QD PO
     Route: 048
     Dates: start: 20060401
  3. NAMENDA [Suspect]
     Indication: DEMENTIA ALZHEIMER'S TYPE
     Dosage: 5 MG QD PO
     Route: 048
     Dates: start: 20060315, end: 20060321
  4. NAMENDA [Suspect]
     Indication: DEMENTIA ALZHEIMER'S TYPE
     Dosage: 5 MG BID PO
     Route: 048
     Dates: start: 20060322, end: 20060328
  5. NAMENDA [Suspect]
     Indication: DEMENTIA ALZHEIMER'S TYPE
     Dosage: 15 MG QD PO
     Route: 048
     Dates: start: 20060329, end: 20060404
  6. ZETIA [Concomitant]
  7. ZOCOR [Concomitant]
  8. EFFEXOR [Concomitant]
  9. ASPIRIN [Concomitant]

REACTIONS (2)
  - CONFUSIONAL STATE [None]
  - STOMACH DISCOMFORT [None]
